FAERS Safety Report 4515856-1 (Version None)
Quarter: 2004Q4

REPORT INFORMATION
  Report Type: 
  Country: None (occurrence: None)
  Receive Date: 20041001
  Receipt Date: 20031113
  Transmission Date: 20050328
  Serious: Yes (Hospitalization)
  Sender: FDA-Public Use
  Company Number: TPA2003A01581

PATIENT
  Age: 54 Year
  Sex: Female
  Weight: 115.2136 kg

DRUGS (6)
  1. ACTOS [Suspect]
     Indication: DIABETES MELLITUS NON-INSULIN-DEPENDENT
     Dosage: 15 MG, 1 IN 1 D, PER ORAL; SEE IMAGE
     Route: 048
     Dates: start: 20011101, end: 20021001
  2. ACTOS [Suspect]
     Indication: DIABETES MELLITUS NON-INSULIN-DEPENDENT
     Dosage: 15 MG, 1 IN 1 D, PER ORAL; SEE IMAGE
     Route: 048
     Dates: start: 20021001, end: 20031101
  3. INSULIN (INSULIN/N/A) [Concomitant]
  4. ZESTRIL [Concomitant]
  5. LOVASTATIN [Concomitant]
  6. ATENOLOL [Concomitant]

REACTIONS (3)
  - CARDIAC FAILURE CONGESTIVE [None]
  - DYSPNOEA [None]
  - OEDEMA [None]
